FAERS Safety Report 9708557 (Version 1)
Quarter: 2013Q4

REPORT INFORMATION
  Report Type: Spontaneous
  Country: US (occurrence: None)
  Receive Date: 20131121
  Receipt Date: 20131121
  Transmission Date: 20140711
  Serious: Yes (Life-Threatening, Hospitalization)
  Sender: FDA-Public Use
  Company Number: 2013P1020862

PATIENT
  Age: 16 Year
  Sex: Female

DRUGS (12)
  1. ATENOLOL [Suspect]
     Route: 048
  2. AMLODIPINE [Suspect]
     Route: 048
  3. CLONIDINE [Suspect]
     Route: 048
  4. LISINOPRIL [Suspect]
     Dosage: 2.5 MG; BID; PO AND 10 MG;BID ; PO UNKNOWN - UNKNOWN
     Route: 048
  5. FUROSEMIDE [Suspect]
     Dosage: 0.1 MG/KG ; QH ; IV 40 MG; BID; PO 20 MG;BID;PO
     Route: 042
  6. METOPROLOL [Suspect]
     Dosage: 25 MG ;
  7. EPOETIN ALPHA [Concomitant]
  8. CALCITRIOL SODIUM [Concomitant]
  9. BICARBONATE [Concomitant]
  10. CALCIUM ACETATE [Concomitant]
  11. NICARDIPINE [Concomitant]
  12. AMITRIPTYLINE [Concomitant]

REACTIONS (6)
  - Vertigo [None]
  - Fall [None]
  - Migraine [None]
  - Unresponsive to stimuli [None]
  - Moyamoya disease [None]
  - Transient ischaemic attack [None]
